FAERS Safety Report 18447895 (Version 1)
Quarter: 2020Q4

REPORT INFORMATION
  Report Type: Spontaneous
  Country: US (occurrence: US)
  Receive Date: 20201030
  Receipt Date: 20201030
  Transmission Date: 20210114
  Serious: No
  Sender: FDA-Public Use
  Company Number: US-UPSHER-SMITH LABORATORIES, LLC-2020USL00311

PATIENT
  Sex: Female
  Weight: 106.58 kg

DRUGS (2)
  1. COUMADIN [Suspect]
     Active Substance: WARFARIN SODIUM
     Indication: PULMONARY EMBOLISM
     Dosage: UNK
  2. WARFARIN SODIUM. [Suspect]
     Active Substance: WARFARIN SODIUM
     Indication: PULMONARY EMBOLISM
     Dosage: 2 OR 3 MG, 1X/DAY
     Route: 048
     Dates: start: 201109

REACTIONS (3)
  - Thirst [Not Recovered/Not Resolved]
  - International normalised ratio abnormal [Recovered/Resolved]
  - Tooth erosion [Not Recovered/Not Resolved]
